FAERS Safety Report 5342010-6 (Version None)
Quarter: 2007Q2

REPORT INFORMATION
  Report Type: 
  Country: None (occurrence: None)
  Receive Date: 20070601
  Receipt Date: 20070525
  Transmission Date: 20071010
  Serious: Yes (Death)
  Sender: FDA-Public Use
  Company Number: CO-AVENTIS-200714702GDDC

PATIENT
  Sex: Male
  Weight: 52 kg

DRUGS (1)
  1. GLIMEPIRIDE [Suspect]
     Route: 048

REACTIONS (1)
  - DEATH [None]
